FAERS Safety Report 13564888 (Version 2)
Quarter: 2017Q2

REPORT INFORMATION
  Report Type: Spontaneous
  Country: US (occurrence: US)
  Receive Date: 20170519
  Receipt Date: 20170523
  Transmission Date: 20170830
  Serious: Yes (Other)
  Sender: FDA-Public Use
  Company Number: US-009507513-1606USA004490

PATIENT
  Sex: Female

DRUGS (1)
  1. NEXPLANON [Suspect]
     Active Substance: ETONOGESTREL
     Route: 059

REACTIONS (4)
  - Unintended pregnancy [Recovered/Resolved]
  - Abortion spontaneous [Recovered/Resolved]
  - Haemorrhage [Unknown]
  - Complication associated with device [Unknown]
